FAERS Safety Report 5722907-5 (Version None)
Quarter: 2008Q2

REPORT INFORMATION
  Report Type: 
  Country: None (occurrence: None)
  Receive Date: 20080425
  Receipt Date: 20080411
  Transmission Date: 20081010
  Serious: Yes (Hospitalization, Disabling, Other)
  Sender: FDA-Public Use
  Company Number: S08-FRA-01533-01

PATIENT
  Age: 76 Year
  Sex: Male

DRUGS (10)
  1. CITALOPRAM HYDROBROMIDE [Suspect]
     Dosage: 20 MG QD PO
     Route: 048
  2. IMOVANE  (ZOPICLONE) [Suspect]
     Dosage: 1 QD PO
     Route: 048
  3. XANAX [Suspect]
     Dosage: 1 QD PO
     Route: 048
  4. REQUIP [Suspect]
     Indication: PARKINSON'S DISEASE
     Dosage: 1 QD
  5. SINEMET [Suspect]
     Indication: PARKINSON'S DISEASE
     Dosage: 1 QD
  6. SINEMET LP  (CARBIDOPA/LEVODOPA LONG RELEASE) [Suspect]
     Indication: PARKINSON'S DISEASE
     Dosage: 1 QD
  7. MOTILIUM  (LOPERAMIDE HYDROCHLORIDE) [Concomitant]
  8. ZOCOR [Concomitant]
  9. FORLAX  (MACROGOL) [Concomitant]
  10. INEXIUM  (ESOMEPRAZOLE) [Concomitant]

REACTIONS (11)
  - ATROPHY [None]
  - BLOOD CREATINE PHOSPHOKINASE INCREASED [None]
  - DISORIENTATION [None]
  - FALL [None]
  - HEAD INJURY [None]
  - HYPERTONIA [None]
  - MALAISE [None]
  - NORMOCHROMIC NORMOCYTIC ANAEMIA [None]
  - ORTHOSTATIC HYPOTENSION [None]
  - RENAL FAILURE ACUTE [None]
  - URINARY RETENTION [None]
